FAERS Safety Report 4307640-9 (Version None)
Quarter: 2004Q1

REPORT INFORMATION
  Report Type: 
  Country: None (occurrence: None)
  Receive Date: 20040227
  Receipt Date: 20040227
  Transmission Date: 20041129
  Serious: No
  Sender: FDA-Public Use
  Company Number: None

PATIENT
  Sex: Male
  Weight: 106.1417 kg

DRUGS (2)
  1. ZOLADEX [Suspect]
     Indication: PROSTATE CANCER
     Dosage: 10.8 MG Q 3 MO SUBCUTANEOUS
     Route: 058
     Dates: start: 20030114, end: 20040106
  2. CASODEX [Suspect]
     Indication: PROSTATE CANCER
     Dosage: 50 MG DAILY ORAL
     Route: 048
     Dates: start: 20030114, end: 20031007

REACTIONS (6)
  - ANAEMIA [None]
  - GAMMOPATHY [None]
  - HYPOALBUMINAEMIA [None]
  - NEPHROTIC SYNDROME [None]
  - PROTEINURIA [None]
  - RED BLOOD CELL SEDIMENTATION RATE INCREASED [None]
